FAERS Safety Report 23196793 (Version 2)
Quarter: 2024Q3

REPORT INFORMATION
  Report Type: Spontaneous
  Country: AU (occurrence: AU)
  Receive Date: 20231117
  Receipt Date: 20240812
  Transmission Date: 20241017
  Serious: Yes (Other)
  Sender: MERCK
  Company Number: AU-009507513-2311AUS005325

PATIENT
  Age: 70 Year
  Sex: Female

DRUGS (2)
  1. PEMBROLIZUMAB [Suspect]
     Active Substance: PEMBROLIZUMAB
     Indication: Pleural mesothelioma
     Dosage: UNK
  2. IPILIMUMAB [Suspect]
     Active Substance: IPILIMUMAB
     Indication: Pleural mesothelioma
     Dosage: UNK

REACTIONS (5)
  - Immune-mediated hypophysitis [Unknown]
  - Adrenal insufficiency [Unknown]
  - Central hypothyroidism [Unknown]
  - Hypopituitarism [Unknown]
  - Product use in unapproved indication [Unknown]
